FAERS Safety Report 6686578-6 (Version None)
Quarter: 2010Q2

REPORT INFORMATION
  Report Type: 
  Country: None (occurrence: None)
  Receive Date: 20100414
  Receipt Date: 20100408
  Transmission Date: 20101027
  Serious: Yes (Hospitalization)
  Sender: FDA-Public Use
  Company Number: 1000013115

PATIENT
  Age: 90 Year
  Sex: Female

DRUGS (2)
  1. BYSTOLIC [Suspect]
     Dosage: 2.5 MG (2.5 MG, 1 IN 1 D), ORAL
     Route: 048
  2. AMIODARONE [Concomitant]

REACTIONS (2)
  - BRADYCARDIA [None]
  - FAILURE TO THRIVE [None]
